FAERS Safety Report 8240928-8 (Version None)
Quarter: 2012Q1

REPORT INFORMATION
  Report Type: 
  Country: None (occurrence: None)
  Receive Date: 20120328
  Receipt Date: 20120323
  Transmission Date: 20120608
  Serious: Yes (Hospitalization)
  Sender: FDA-Public Use
  Company Number: US-BAYER-2011-079351

PATIENT
  Age: 21 Year
  Sex: Female
  Weight: 92.971 kg

DRUGS (4)
  1. VALTREX [Concomitant]
     Indication: HERPES VIRUS INFECTION
  2. YASMIN [Suspect]
     Dosage: UNK
     Dates: start: 20040101, end: 20080101
  3. YAZ [Suspect]
     Dosage: UNK
     Dates: start: 20040101, end: 20080101
  4. DROSPIRENONE AND ETHINYL ESTRADIOL [Suspect]
     Dosage: UNK
     Dates: start: 20040101, end: 20080101

REACTIONS (1)
  - CHOLECYSTECTOMY [None]
